FAERS Safety Report 19682786 (Version 3)
Quarter: 2021Q3

REPORT INFORMATION
  Report Type: Report from Study
  Country: US (occurrence: US)
  Receive Date: 20210810
  Receipt Date: 20210924
  Transmission Date: 20211014
  Serious: Yes (Hospitalization, Other)
  Sender: FDA-Public Use
  Company Number: US-TAKEDA-2021TUS047608

PATIENT
  Sex: Female

DRUGS (1)
  1. HUMAN NORMAL IMMUNOGLOBULIN; LIQUID [Suspect]
     Active Substance: HUMAN IMMUNOGLOBULIN G
     Indication: PRIMARY IMMUNODEFICIENCY SYNDROME
     Dosage: UNK
     Route: 042

REACTIONS (8)
  - Headache [Unknown]
  - Systemic lupus erythematosus [Unknown]
  - Feeling abnormal [Unknown]
  - Fibromyalgia [Unknown]
  - Bronchitis [Unknown]
  - Malaise [Unknown]
  - Nausea [Unknown]
  - Poor venous access [Unknown]
